FAERS Safety Report 10532588 (Version 2)
Quarter: 2015Q2

REPORT INFORMATION
  Report Type: Spontaneous
  Country: US (occurrence: US)
  Receive Date: 20141021
  Receipt Date: 20150420
  Transmission Date: 20150821
  Serious: Yes (Hospitalization, Other)
  Sender: FDA-Public Use
  Company Number: US-NAPPMUNDI-USA-2014-0117628

PATIENT
  Age: 83 Year
  Sex: Female

DRUGS (8)
  1. OXYCONTIN [Suspect]
     Active Substance: OXYCODONE HYDROCHLORIDE
     Indication: HIP FRACTURE
     Dosage: UNK
     Route: 048
  2. HEPARIN [Concomitant]
     Active Substance: HEPARIN SODIUM
     Indication: PERIPHERAL EMBOLISM
  3. OXYCONTIN [Suspect]
     Active Substance: OXYCODONE HYDROCHLORIDE
     Indication: GOUT
  4. ATIVAN [Concomitant]
     Active Substance: LORAZEPAM
     Indication: PRODUCT USED FOR UNKNOWN INDICATION
     Dosage: UNK MG, UNK
     Route: 065
  5. OXYCONTIN [Suspect]
     Active Substance: OXYCODONE HYDROCHLORIDE
     Indication: ARTHRITIS
  6. OXYCONTIN [Suspect]
     Active Substance: OXYCODONE HYDROCHLORIDE
     Indication: PAIN
  7. ENBREL [Concomitant]
     Active Substance: ETANERCEPT
     Indication: HIP FRACTURE
  8. ENBREL [Concomitant]
     Active Substance: ETANERCEPT
     Indication: ARTHRITIS

REACTIONS (33)
  - Decubitus ulcer [Unknown]
  - Faecal incontinence [Unknown]
  - Deep vein thrombosis [Unknown]
  - Fall [Unknown]
  - Peripheral swelling [Unknown]
  - Personality change [Unknown]
  - Nasal congestion [Recovered/Resolved]
  - Fluid retention [Unknown]
  - Hallucination [Unknown]
  - Abasia [Unknown]
  - Cough [Unknown]
  - Erythema [Unknown]
  - Urinary retention [Unknown]
  - Dry eye [Unknown]
  - Hypersomnia [Unknown]
  - Skin ulcer [Unknown]
  - Dysphagia [Unknown]
  - Confusional state [Unknown]
  - Decreased appetite [Unknown]
  - Weight decreased [Unknown]
  - Depressed level of consciousness [Unknown]
  - Head injury [Unknown]
  - Dysarthria [Unknown]
  - Skin discolouration [Unknown]
  - Infection [Unknown]
  - Eructation [Unknown]
  - Pain [Unknown]
  - Flushing [Unknown]
  - Chromaturia [Unknown]
  - Amnesia [Unknown]
  - Impaired self-care [Unknown]
  - Joint stiffness [Unknown]
  - Contusion [Unknown]
